FAERS Safety Report 6298903-9 (Version None)
Quarter: 2009Q3

REPORT INFORMATION
  Report Type: 
  Country: None (occurrence: None)
  Receive Date: 20090804
  Receipt Date: 20090721
  Transmission Date: 20100115
  Serious: Yes (Other)
  Sender: FDA-Public Use
  Company Number: ADE2009-0763

PATIENT
  Age: 40 Year
  Sex: Female

DRUGS (2)
  1. MIRTAZAPINE [Suspect]
     Indication: DEPRESSION
     Dosage: 30MG - UNK - ORAL
     Route: 048
     Dates: start: 20080921
  2. FOLIC ACID [Concomitant]

REACTIONS (3)
  - ABORTION MISSED [None]
  - DRUG EXPOSURE DURING PREGNANCY [None]
  - PREGNANCY [None]
